FAERS Safety Report 5530738-4 (Version None)
Quarter: 2007Q4

REPORT INFORMATION
  Report Type: 
  Country: None (occurrence: None)
  Receive Date: 20071128
  Receipt Date: 20071128
  Transmission Date: 20080405
  Serious: Yes (Other)
  Sender: FDA-Public Use
  Company Number: None

PATIENT
  Sex: Female
  Weight: 52.6173 kg

DRUGS (1)
  1. PRAVASTATIN [Suspect]
     Dosage: 40 MG 1 Q HS PO
     Route: 048
     Dates: start: 20071026, end: 20071102

REACTIONS (5)
  - ANOREXIA [None]
  - FAECES PALE [None]
  - MUSCULAR WEAKNESS [None]
  - MYALGIA [None]
  - NAUSEA [None]
